FAERS Safety Report 8903625 (Version 2)
Quarter: 2014Q2

REPORT INFORMATION
  Report Type: Spontaneous
  Country: US (occurrence: US)
  Receive Date: 20121112
  Receipt Date: 20131024
  Transmission Date: 20141212
  Serious: No
  Sender: FDA-Public Use
  Company Number: US-PFIZER INC-2012280274

PATIENT
  Age: 63 Year
  Sex: Male
  Weight: 80.27 kg

DRUGS (2)
  1. PHENYTOIN SODIUM [Suspect]
     Indication: CONVULSION
     Dosage: 100 MG, 3X/DAY
     Dates: start: 2010
  2. ACETYLSALICYLIC ACID [Concomitant]
     Indication: CEREBROVASCULAR ACCIDENT
     Dosage: UNK DAILY AT NIGHT

REACTIONS (1)
  - Anticonvulsant drug level decreased [Not Recovered/Not Resolved]
